FAERS Safety Report 5781945-7 (Version None)
Quarter: 2008Q2

REPORT INFORMATION
  Report Type: 
  Country: None (occurrence: None)
  Receive Date: 20080623
  Receipt Date: 20080623
  Transmission Date: 20081010
  Serious: Yes (Other)
  Sender: FDA-Public Use
  Company Number: B0525801B

PATIENT

DRUGS (1)
  1. AMOXICILLIN TRIHYDRATE [Suspect]
     Indication: DRUG USE FOR UNKNOWN INDICATION
     Dates: start: 20080430, end: 20080430

REACTIONS (3)
  - BRADYCARDIA [None]
  - DRUG EXPOSURE DURING PREGNANCY [None]
  - TACHYCARDIA [None]
